FAERS Safety Report 18840125 (Version 2)
Quarter: 2021Q2

REPORT INFORMATION
  Report Type: Spontaneous
  Country: US (occurrence: US)
  Receive Date: 20210204
  Receipt Date: 20210510
  Transmission Date: 20210717
  Serious: No
  Sender: FDA-Public Use
  Company Number: US-AUROBINDO-AUR-APL-2020-058001

PATIENT
  Sex: Male

DRUGS (3)
  1. LORATADINE 10 MG TABLETS USP (OTC) [Suspect]
     Active Substance: LORATADINE
     Indication: SNEEZING
     Dosage: 1 DOSAGE FORM, ONCE A DAY,
     Route: 048
  2. LORATADINE 10 MG TABLETS USP (OTC) [Suspect]
     Active Substance: LORATADINE
     Indication: RHINORRHOEA
  3. LORATADINE 10 MG TABLETS USP (OTC) [Suspect]
     Active Substance: LORATADINE
     Indication: COUGH

REACTIONS (1)
  - Drug ineffective [Unknown]
